FAERS Safety Report 8154368-3 (Version None)
Quarter: 2012Q1

REPORT INFORMATION
  Report Type: 
  Country: None (occurrence: None)
  Receive Date: 20120103
  Receipt Date: 20111027
  Transmission Date: 20120608
  Serious: No
  Sender: FDA-Public Use
  Company Number: AE-2011-002774

PATIENT
  Age: 49 Year
  Sex: Female
  Weight: 90.2658 kg

DRUGS (6)
  1. INCIVEK [Suspect]
     Dosage: 2250 MG (750 MG, 3 IN 1 D), ORAL
     Route: 048
     Dates: start: 20111021
  2. MULTIVITAMIN [Concomitant]
  3. COPEGUS [Concomitant]
  4. VITAMIN D [Concomitant]
  5. PEGASYS [Concomitant]
  6. LANIX (LASIX /SCH/) [Concomitant]

REACTIONS (4)
  - FEELING DRUNK [None]
  - DYSGEUSIA [None]
  - NAUSEA [None]
  - HEADACHE [None]
